FAERS Safety Report 14538738 (Version 1)
Quarter: 2018Q1

REPORT INFORMATION
  Report Type: Spontaneous
  Country: US (occurrence: US)
  Receive Date: 20180216
  Receipt Date: 20180216
  Transmission Date: 20180509
  Serious: No
  Sender: FDA-Public Use
  Company Number: US-ENDO PHARMACEUTICALS INC-2017-009887

PATIENT
  Age: 4 Year
  Sex: Male

DRUGS (1)
  1. VIGABATRIN. [Suspect]
     Active Substance: VIGABATRIN
     Indication: SEIZURE
     Dosage: 5 MG, BID
     Route: 048
     Dates: start: 20171211

REACTIONS (6)
  - Flushing [Unknown]
  - Abnormal behaviour [Unknown]
  - Anxiety [Unknown]
  - Psychomotor hyperactivity [Unknown]
  - Malaise [Unknown]
  - Insomnia [Unknown]

NARRATIVE: CASE EVENT DATE: 201712
